FAERS Safety Report 6926183-7 (Version None)
Quarter: 2010Q3

REPORT INFORMATION
  Report Type: 
  Country: None (occurrence: None)
  Receive Date: 20100813
  Receipt Date: 20100813
  Transmission Date: 20110219
  Serious: No
  Sender: FDA-Public Use
  Company Number: None

PATIENT
  Sex: Female

DRUGS (1)
  1. ERYTHROMYCIN 0.5% BAUSCH + LOMB [Suspect]
     Dosage: 1 INCH RIBBON TO LEFT EYE ONLY 3-4 TIMES D AILY OPHTHALMIC (ONLY 4 APPLICATIONS)
     Route: 047
     Dates: start: 20100809, end: 20100810

REACTIONS (3)
  - OCULAR HYPERAEMIA [None]
  - SWELLING [None]
  - TENDERNESS [None]
